FAERS Safety Report 11244974 (Version 2)
Quarter: 2015Q3

REPORT INFORMATION
  Report Type: Report from Study
  Country: MX (occurrence: MX)
  Receive Date: 20150707
  Receipt Date: 20150729
  Transmission Date: 20151125
  Serious: Yes (Death, Other)
  Sender: FDA-Public Use
  Company Number: MX-JNJFOC-20150623826

PATIENT
  Age: 65 Year
  Sex: Male

DRUGS (2)
  1. IBRUTINIB [Suspect]
     Active Substance: IBRUTINIB
     Indication: CHRONIC LYMPHOCYTIC LEUKAEMIA
     Route: 048
     Dates: start: 20150626
  2. IBRUTINIB [Suspect]
     Active Substance: IBRUTINIB
     Indication: CHRONIC LYMPHOCYTIC LEUKAEMIA
     Route: 048
     Dates: start: 20150619

REACTIONS (5)
  - Myelitis [Unknown]
  - Paraparesis [Unknown]
  - Bone marrow failure [Unknown]
  - Paraplegia [Unknown]
  - Pneumonia [Fatal]

NARRATIVE: CASE EVENT DATE: 201506
